FAERS Safety Report 9272940 (Version 4)
Quarter: 2013Q3

REPORT INFORMATION
  Report Type: Report from Study
  Country: PL (occurrence: PL)
  Receive Date: 20130506
  Receipt Date: 20130701
  Transmission Date: 20140515
  Serious: Yes (Hospitalization, Disabling)
  Sender: FDA-Public Use
  Company Number: PL-PFIZER INC-2013139940

PATIENT
  Age: 66 Year
  Sex: Male

DRUGS (12)
  1. SUNITINIB MALATE [Suspect]
     Indication: RENAL CELL CARCINOMA
     Dosage: 50 MG, 1X/DAY
     Route: 048
     Dates: start: 20120827, end: 20120923
  2. SUNITINIB MALATE [Suspect]
     Dosage: 50 MG, 1X/DAY
     Route: 048
     Dates: start: 20121008, end: 20121104
  3. SUNITINIB MALATE [Suspect]
     Dosage: 50 MG, 1X/DAY
     Route: 048
     Dates: start: 20121119, end: 20121216
  4. SUNITINIB MALATE [Suspect]
     Dosage: 50 MG, 1X/DAY
     Route: 048
     Dates: start: 20121231, end: 20130127
  5. SUNITINIB MALATE [Suspect]
     Dosage: 50 MG, 1X/DAY
     Route: 048
     Dates: start: 20130212, end: 20130312
  6. CYCLOPHOSPHAMIDE [Suspect]
     Indication: RENAL CELL CARCINOMA
     Dosage: 300 MG/M2, 1X
     Route: 042
     Dates: start: 20120927, end: 20120927
  7. IMA901 [Suspect]
     Indication: RENAL CELL CARCINOMA
     Dosage: 4.13 MG, INJECTION, UNK
     Route: 023
     Dates: start: 20121001, end: 20130117
  8. GRANULOCYTE COLONY STIMULATING FACTOR [Suspect]
     Indication: RENAL CELL CARCINOMA
     Dosage: 75 UG, UNK
     Route: 023
     Dates: start: 20121001, end: 20130117
  9. KETOPROFEN [Concomitant]
     Dosage: UNK
     Dates: start: 20130422
  10. PERFALGAN [Concomitant]
     Dosage: UNK
     Dates: start: 20130422
  11. SIMETICONE [Concomitant]
     Indication: ABDOMINAL DISTENSION
     Dosage: UNK
     Dates: start: 20120927, end: 20121020
  12. DROTAVERINE [Concomitant]
     Indication: ABDOMINAL PAIN UPPER
     Dosage: UNK
     Dates: start: 20121020, end: 20121101

REACTIONS (1)
  - Extremity necrosis [Recovered/Resolved with Sequelae]
